FAERS Safety Report 7792750-4 (Version None)
Quarter: 2011Q4

REPORT INFORMATION
  Report Type: 
  Country: None (occurrence: None)
  Receive Date: 20111003
  Receipt Date: 20110926
  Transmission Date: 20120403
  Serious: Yes (Death, Life-Threatening, Hospitalization, Other)
  Sender: FDA-Public Use
  Company Number: US-CELGENEUS-163-21880-11091857

PATIENT
  Sex: Male
  Weight: 140.74 kg

DRUGS (14)
  1. VELCADE [Concomitant]
     Dosage: 4 MILLIGRAM
     Route: 041
     Dates: start: 20110822, end: 20110906
  2. REVLIMID [Suspect]
     Indication: MULTIPLE MYELOMA
     Dosage: 15 MILLIGRAM
     Route: 048
     Dates: start: 20110824, end: 20110911
  3. ACTOS [Concomitant]
     Dosage: 30 MILLIGRAM
     Route: 048
     Dates: start: 20100101
  4. PROCRIT [Concomitant]
     Indication: CHEMOTHERAPY
     Dosage: 10,000 IU
     Route: 058
     Dates: start: 20110829, end: 20110906
  5. ENALAPRIL MALEATE [Concomitant]
     Dosage: 10 MILLIGRAM
     Route: 048
     Dates: start: 20100101
  6. VITAMIN B-12 [Concomitant]
     Dosage: 1000 MICROGRAM
     Route: 048
     Dates: start: 20110101
  7. DEXAMETHASONE [Concomitant]
     Dosage: 20 MILLIGRAM
     Route: 041
     Dates: start: 20110822, end: 20110906
  8. GLYBURIDE [Concomitant]
     Dosage: 3 MILLIGRAM
     Route: 048
     Dates: start: 20050101
  9. CALCIUM WITH VITAMIN D [Concomitant]
     Dosage: 600/400
     Route: 048
     Dates: start: 20110101
  10. ATENOLOL [Concomitant]
     Dosage: 100 MILLIGRAM
     Route: 048
     Dates: start: 20030101
  11. ASPIRIN [Concomitant]
     Dosage: 81 MILLIGRAM
     Route: 048
     Dates: start: 20100101
  12. GARLIC [Concomitant]
     Dosage: 1 DOSAGE FORMS
     Route: 048
     Dates: start: 20080101
  13. ZOMETA [Concomitant]
     Dosage: 4 MILLIGRAM
     Route: 041
     Dates: start: 20110822, end: 20110822
  14. CALCIUM WITH VITAMIN D [Concomitant]
     Dosage: 500 MILLIGRAM
     Route: 048

REACTIONS (2)
  - PLATELET COUNT DECREASED [None]
  - ACUTE MYOCARDIAL INFARCTION [None]
